FAERS Safety Report 20779947 (Version 1)
Quarter: 2022Q2

REPORT INFORMATION
  Report Type: Spontaneous
  Country: CN (occurrence: CN)
  Receive Date: 20220503
  Receipt Date: 20220503
  Transmission Date: 20220721
  Serious: Yes (Other)
  Sender: FDA-Public Use
  Company Number: CN-BAXTER-2022BAX009595

PATIENT
  Age: 56 Year
  Sex: Female
  Weight: 42.5 kg

DRUGS (8)
  1. CYCLOPHOSPHAMIDE [Suspect]
     Active Substance: CYCLOPHOSPHAMIDE
     Indication: Breast cancer female
     Dosage: 0.9% NS (100 ML) +CYCLOPHOSPHAMIDE FOR INJECTION (0.8 G)
     Route: 041
     Dates: start: 20220318, end: 20220318
  2. CYCLOPHOSPHAMIDE [Suspect]
     Active Substance: CYCLOPHOSPHAMIDE
     Dosage: DOSE RE-INTRODUCED, 0.9% NS +CYCLOPHOSPHAMIDE FOR INJECTION
     Route: 041
  3. SODIUM CHLORIDE [Suspect]
     Active Substance: SODIUM CHLORIDE
     Indication: Breast cancer female
     Dosage: 0.9% NS (100 ML) + CYCLOPHOSPHAMIDE FOR INJECTION (0.8 G)
     Route: 041
     Dates: start: 20220318, end: 20220318
  4. SODIUM CHLORIDE [Suspect]
     Active Substance: SODIUM CHLORIDE
     Dosage: DOSE RE-INTRODUCED, 0.9% NS + CYCLOPHOSPHAMIDE FOR INJECTION
     Route: 041
  5. SODIUM CHLORIDE [Suspect]
     Active Substance: SODIUM CHLORIDE
     Dosage: 0.9% NS (250 ML) + EPIRUBICIN FOR INJECTION (120 MG)
     Route: 041
     Dates: start: 20220318, end: 20220318
  6. SODIUM CHLORIDE [Suspect]
     Active Substance: SODIUM CHLORIDE
     Dosage: DOSE RE-INTRODUCED, 0.9% NS  + EPIRUBICIN FOR INJECTION
     Route: 041
  7. EPIRUBICIN [Suspect]
     Active Substance: EPIRUBICIN
     Indication: Breast cancer female
     Dosage: 0.9% NS (250 ML) + EPIRUBICIN FOR INJECTION (120 MG)
     Route: 041
     Dates: start: 20220318, end: 20220318
  8. EPIRUBICIN [Suspect]
     Active Substance: EPIRUBICIN
     Dosage: DOSE RE-INTRODUCED, 0.9% NS + EPIRUBICIN FOR INJECTION
     Route: 041

REACTIONS (3)
  - Gastrointestinal disorder [Recovering/Resolving]
  - Vomiting [Recovering/Resolving]
  - Nausea [Recovering/Resolving]

NARRATIVE: CASE EVENT DATE: 20220318
